FAERS Safety Report 19607006 (Version 2)
Quarter: 2021Q3

REPORT INFORMATION
  Report Type: Spontaneous
  Country: US (occurrence: US)
  Receive Date: 20210726
  Receipt Date: 20210827
  Transmission Date: 20211014
  Serious: Yes (Death, Hospitalization)
  Sender: FDA-Public Use
  Company Number: US-JNJFOC-20210740594

PATIENT
  Age: 31 Year
  Sex: Male
  Weight: 83 kg

DRUGS (2)
  1. FERROUS SULFATE. [Suspect]
     Active Substance: FERROUS SULFATE
     Indication: PRODUCT USED FOR UNKNOWN INDICATION
     Dosage: 100 TABLETS OF 325 MG
     Route: 048
  2. PARACETAMOL [Suspect]
     Active Substance: ACETAMINOPHEN
     Indication: PRODUCT USED FOR UNKNOWN INDICATION
     Dosage: 100 TABLETS OF 325 MG
     Route: 048

REACTIONS (5)
  - Acute kidney injury [Fatal]
  - Blood iron increased [Fatal]
  - Acute hepatic failure [Fatal]
  - Overdose [Fatal]
  - Metabolic acidosis [Fatal]
